FAERS Safety Report 7620073-2 (Version None)
Quarter: 2011Q3

REPORT INFORMATION
  Report Type: 
  Country: None (occurrence: None)
  Receive Date: 20110719
  Receipt Date: 20110708
  Transmission Date: 20111222
  Serious: Yes (Hospitalization)
  Sender: FDA-Public Use
  Company Number: PL-JNJFOC-20110602185

PATIENT
  Sex: Female
  Weight: 49 kg

DRUGS (12)
  1. GOLIMUMAB [Suspect]
     Indication: RHEUMATOID ARTHRITIS
     Route: 058
     Dates: start: 20060706
  2. METHOTREXATE [Concomitant]
     Route: 048
     Dates: start: 20100925
  3. GOLIMUMAB [Suspect]
     Route: 058
     Dates: start: 20110315
  4. METHYLPREDNISOLONE [Concomitant]
     Route: 048
     Dates: start: 20090512, end: 20110315
  5. ACIDUM FOLICUM [Concomitant]
     Indication: ILL-DEFINED DISORDER
     Route: 048
     Dates: start: 20040601
  6. DICLOBERL [Concomitant]
     Indication: ILL-DEFINED DISORDER
     Route: 048
     Dates: start: 20050101
  7. METHYLPREDNISOLONE [Concomitant]
     Indication: ILL-DEFINED DISORDER
     Route: 048
     Dates: start: 20110316
  8. METHOTREXATE [Concomitant]
     Route: 048
     Dates: start: 20080605, end: 20081119
  9. METHOTREXATE [Suspect]
     Route: 048
     Dates: start: 20060617, end: 20060701
  10. CILEST [Concomitant]
     Indication: ILL-DEFINED DISORDER
     Route: 048
     Dates: start: 10060501
  11. METHOTREXATE [Concomitant]
     Route: 048
     Dates: start: 20081120, end: 20100918
  12. METHOTREXATE [Suspect]
     Indication: RHEUMATOID ARTHRITIS
     Route: 048
     Dates: start: 20060708, end: 20080503

REACTIONS (1)
  - PYELONEPHRITIS ACUTE [None]
